FAERS Safety Report 10178833 (Version 1)
Quarter: 2014Q2

REPORT INFORMATION
  Report Type: Spontaneous
  Country: IT (occurrence: IT)
  Receive Date: 20140519
  Receipt Date: 20140519
  Transmission Date: 20141212
  Serious: Yes (Other)
  Sender: FDA-Public Use
  Company Number: IT-UCBSA-121324

PATIENT
  Sex: Female

DRUGS (5)
  1. ROTIGOTINE [Suspect]
  2. ROTIGOTINE [Suspect]
     Dosage: TEMPORARY DOSAGE REDUCTION
  3. ROTIGOTINE [Suspect]
     Dosage: 3 MONTHS LATER
  4. ESCITALOPRAM [Suspect]
  5. PYRIDOXINE [Suspect]

REACTIONS (3)
  - Myoclonus [Unknown]
  - Oculogyric crisis [Unknown]
  - Therapeutic response changed [Unknown]
